FAERS Safety Report 12204889 (Version 1)
Quarter: 2016Q1

REPORT INFORMATION
  Report Type: Spontaneous
  Country: JP (occurrence: JP)
  Receive Date: 20160323
  Receipt Date: 20160323
  Transmission Date: 20160526
  Serious: Yes (Hospitalization, Other)
  Sender: FDA-Public Use
  Company Number: JP-JNJFOC-20160316544

PATIENT
  Sex: Male

DRUGS (4)
  1. ORENCIA [Concomitant]
     Active Substance: ABATACEPT
     Route: 065
     Dates: start: 20160113
  2. FORTEO [Concomitant]
     Active Substance: TERIPARATIDE
     Route: 065
  3. REMICADE [Suspect]
     Active Substance: INFLIXIMAB
     Indication: PRODUCT USED FOR UNKNOWN INDICATION
     Route: 042
  4. ENBREL [Concomitant]
     Active Substance: ETANERCEPT
     Route: 065
     Dates: start: 20151104

REACTIONS (3)
  - Ataxia [Recovered/Resolved]
  - Pleurisy [Recovered/Resolved]
  - Pleural effusion [Recovered/Resolved]
